FAERS Safety Report 6731338-0 (Version None)
Quarter: 2010Q2

REPORT INFORMATION
  Report Type: 
  Country: None (occurrence: None)
  Receive Date: 20100517
  Receipt Date: 20100517
  Transmission Date: 20101027
  Serious: Yes (Life-Threatening, Hospitalization, Disabling)
  Sender: FDA-Public Use
  Company Number: None

PATIENT
  Age: 29 Year
  Sex: Female
  Weight: 61 kg

DRUGS (1)
  1. METOCLOPAMIDE 10MG HOSPIRA [Suspect]
     Indication: VOMITING IN PREGNANCY
     Dosage: 10MG X1 IV BOLUS
     Route: 040
     Dates: start: 20100508, end: 20100508

REACTIONS (4)
  - DYSARTHRIA [None]
  - MUSCULOSKELETAL STIFFNESS [None]
  - TONGUE DISORDER [None]
  - TREMOR [None]
